FAERS Safety Report 7677995 (Version 2)
Quarter: 2013Q1

REPORT INFORMATION
  Report Type: Spontaneous
  Country: FR (occurrence: FR)
  Receive Date: 20101122
  Receipt Date: 20130315
  Transmission Date: 20140127
  Serious: Yes (Hospitalization)
  Sender: FDA-Public Use
  Company Number: FR-SANOFI-AVENTIS-2010SA069313

PATIENT
  Age: 34 Year
  Sex: Male

DRUGS (6)
  1. LOVENOX [Suspect]
     Indication: ERYSIPELAS
     Route: 058
     Dates: start: 20100829, end: 20100908
  2. TOPALGIC [Suspect]
     Indication: ERYSIPELAS
     Route: 048
     Dates: start: 20100829, end: 20100908
  3. PENICILLIN G SODIUM [Suspect]
     Indication: ERYSIPELAS
     Dosage: DOSE:20 MEGAUNIT(S)
     Route: 042
     Dates: start: 20100829, end: 20100901
  4. DAFALGAN [Suspect]
     Indication: ERYSIPELAS
     Route: 048
     Dates: start: 20100829, end: 20100908
  5. TAZOCILLINE [Suspect]
     Indication: JOINT ABSCESS
     Route: 042
     Dates: start: 20100901, end: 20100903
  6. GENTAMICIN [Suspect]
     Indication: JOINT ABSCESS
     Route: 042
     Dates: start: 20100901, end: 20100903

REACTIONS (3)
  - Rash maculo-papular [Recovered/Resolved]
  - Oedema [Recovered/Resolved]
  - Eosinophilia [Recovered/Resolved]
